FAERS Safety Report 5623811-3 (Version None)
Quarter: 2008Q1

REPORT INFORMATION
  Report Type: 
  Country: None (occurrence: None)
  Receive Date: 20080207
  Receipt Date: 20080122
  Transmission Date: 20080703
  Serious: Yes (Hospitalization)
  Sender: FDA-Public Use
  Company Number: 2007BI025303

PATIENT
  Age: 53 Year
  Sex: Female

DRUGS (6)
  1. AVONEX [Suspect]
     Indication: MULTIPLE SCLEROSIS
     Dosage: QW
     Dates: start: 20070701
  2. OMEPRAZOLE [Concomitant]
  3. BROMOPRIDE [Concomitant]
  4. CORTICOIDS [Concomitant]
  5. METICORTEN [Concomitant]
  6. CYCLOPHOSPHAMIDE [Concomitant]

REACTIONS (15)
  - BLOOD TEST NORMAL [None]
  - CHEMOTHERAPY [None]
  - DEPRESSION [None]
  - DIABETES MELLITUS [None]
  - DIARRHOEA [None]
  - DYSSTASIA [None]
  - HEADACHE [None]
  - MOVEMENT DISORDER [None]
  - NAUSEA [None]
  - NECK PAIN [None]
  - NERVOUSNESS [None]
  - SOMNOLENCE [None]
  - UNEVALUABLE EVENT [None]
  - VOMITING [None]
  - WEIGHT DECREASED [None]
